FAERS Safety Report 4607736-8 (Version None)
Quarter: 2005Q1

REPORT INFORMATION
  Report Type: 
  Country: None (occurrence: None)
  Receive Date: 20050310
  Receipt Date: 20050302
  Transmission Date: 20050727
  Serious: Yes (Hospitalization, Other)
  Sender: FDA-Public Use
  Company Number: 05-134

PATIENT
  Age: 56 Year
  Sex: Female

DRUGS (6)
  1. ISOPTIN [Suspect]
     Dosage: ORAL
     Route: 048
  2. PACLITAXEL [Suspect]
     Indication: ADENOCARCINOMA
     Dosage: ORAL
     Route: 048
     Dates: start: 20040610, end: 20040610
  3. CISPLATIN [Suspect]
     Indication: ADENOCARCINOMA
     Dosage: INTRAVENOUS
     Route: 042
     Dates: start: 20040610, end: 20040610
  4. FLUINDIONE [Suspect]
     Dosage: ORAL
     Route: 048
  5. DI-GESIC [Suspect]
     Dosage: ORAL
     Route: 048
     Dates: start: 20040526, end: 20040610
  6. GABAPENTIN [Concomitant]

REACTIONS (8)
  - ASTHENIA [None]
  - HEAD INJURY [None]
  - HEADACHE [None]
  - LOSS OF CONSCIOUSNESS [None]
  - MALAISE [None]
  - OVERDOSE [None]
  - VOMITING [None]
  - WOUND [None]
